FAERS Safety Report 4469079-5 (Version None)
Quarter: 2004Q4

REPORT INFORMATION
  Report Type: 
  Country: None (occurrence: None)
  Receive Date: 20041006
  Receipt Date: 20041006
  Transmission Date: 20050328
  Serious: No
  Sender: FDA-Public Use
  Company Number: None

PATIENT
  Age: 43 Year
  Sex: Female
  Weight: 66.6788 kg

DRUGS (2)
  1. VIOXX [Suspect]
     Indication: BACK PAIN
     Dosage: 12.5 QD ORAL
     Route: 048
     Dates: start: 20030818, end: 20040930
  2. VIOXX [Suspect]
     Indication: NECK PAIN
     Dosage: 12.5 QD ORAL
     Route: 048
     Dates: start: 20030818, end: 20040930

REACTIONS (5)
  - CHEST PAIN [None]
  - DYSPNOEA [None]
  - NEPHROLITHIASIS [None]
  - PAIN [None]
  - POLLAKIURIA [None]
